FAERS Safety Report 4324105-9 (Version None)
Quarter: 2004Q1

REPORT INFORMATION
  Report Type: 
  Country: None (occurrence: None)
  Receive Date: 20040326
  Receipt Date: 20031219
  Transmission Date: 20041129
  Serious: No
  Sender: FDA-Public Use
  Company Number: US-GLAXOSMITHKLINE-A0443751A

PATIENT
  Age: 72 Year
  Sex: Female

DRUGS (6)
  1. ADVAIR DISKUS 100/50 [Suspect]
     Dosage: 1MCG TWICE PER DAY
     Route: 055
  2. PREMARIN [Concomitant]
  3. PROGESTERONE [Concomitant]
  4. ATIVAN [Concomitant]
  5. FOSAMAX [Concomitant]
  6. IRESSA [Concomitant]

REACTIONS (2)
  - JOINT SWELLING [None]
  - OEDEMA PERIPHERAL [None]
